FAERS Safety Report 20844578 (Version 10)
Quarter: 2023Q2

REPORT INFORMATION
  Report Type: Report from Study
  Country: CA (occurrence: CA)
  Receive Date: 20220518
  Receipt Date: 20230424
  Transmission Date: 20230721
  Serious: Yes (Death, Other)
  Sender: FDA-Public Use
  Company Number: CA-OTSUKA-2022_027551

PATIENT
  Sex: Female

DRUGS (11)
  1. CEDAZURIDINE\DECITABINE [Suspect]
     Active Substance: CEDAZURIDINE\DECITABINE
     Indication: Myelodysplastic syndrome
     Dosage: 1 DF (35 MG DECITABINE AND 100 MG CEDAZURIDINE), QD (1-5 DAY) EVERY 28-DAY
     Route: 065
     Dates: start: 20211213
  2. EPREX [Concomitant]
     Active Substance: ERYTHROPOIETIN
     Indication: Product used for unknown indication
     Dosage: 40,000 QW
     Route: 058
     Dates: start: 20220303, end: 20220705
  3. ATROVENT [Concomitant]
     Active Substance: IPRATROPIUM BROMIDE
     Indication: Product used for unknown indication
     Dosage: UNK
     Route: 065
  4. RABEPRAZOLE [Concomitant]
     Active Substance: RABEPRAZOLE
     Indication: Product used for unknown indication
     Dosage: 20
     Route: 065
  5. SYMBICORT [Concomitant]
     Active Substance: BUDESONIDE\FORMOTEROL FUMARATE DIHYDRATE
     Indication: Product used for unknown indication
     Dosage: UNK
     Route: 065
  6. MAGNESIUM [Concomitant]
     Active Substance: MAGNESIUM
     Indication: Product used for unknown indication
     Dosage: UNK
     Route: 065
  7. ROSUVASTATIN [Concomitant]
     Active Substance: ROSUVASTATIN
     Indication: Product used for unknown indication
     Dosage: UNK
     Route: 065
  8. SYNTHROID [Concomitant]
     Active Substance: LEVOTHYROXINE SODIUM
     Indication: Product used for unknown indication
     Dosage: 100
     Route: 065
  9. PREVYMIS [Concomitant]
     Active Substance: LETERMOVIR
     Indication: Antiviral prophylaxis
     Dosage: UNK (240 MG AND 480 MG) TABLETS
     Route: 065
  10. PREVYMIS [Concomitant]
     Active Substance: LETERMOVIR
     Dosage: UNK (240 MG AND 480MG)
     Route: 042
  11. THYMOCYTE IMMUNE GLOBULIN NOS [Concomitant]
     Active Substance: THYMOCYTE IMMUNE GLOBULIN NOS
     Indication: Bone marrow conditioning regimen
     Dosage: UNK
     Route: 065

REACTIONS (6)
  - Death [Fatal]
  - Blood product transfusion dependent [Recovering/Resolving]
  - Eastern Cooperative Oncology Group performance status worsened [Unknown]
  - General physical health deterioration [Unknown]
  - Product packaging quantity issue [Unknown]
  - Therapy interrupted [Unknown]
